FAERS Safety Report 16269787 (Version 1)
Quarter: 2019Q2

REPORT INFORMATION
  Report Type: Spontaneous
  Country: US (occurrence: US)
  Receive Date: 20190503
  Receipt Date: 20190503
  Transmission Date: 20190711
  Serious: No
  Sender: FDA-Public Use
  Company Number: US-PFIZER INC-2019189244

PATIENT
  Age: 55 Year

DRUGS (2)
  1. CELEBREX [Suspect]
     Active Substance: CELECOXIB
     Dosage: UNK (100)
  2. CELEBREX [Suspect]
     Active Substance: CELECOXIB
     Indication: ARTHRITIS
     Dosage: UNK (200)

REACTIONS (1)
  - Pain [Unknown]
